FAERS Safety Report 18172948 (Version 2)
Quarter: 2020Q3

REPORT INFORMATION
  Report Type: Other
  Country: US (occurrence: US)
  Receive Date: 20200820
  Receipt Date: 20200828
  Transmission Date: 20201103
  Serious: Yes (Death)
  Sender: FDA-Public Use
  Company Number: US-ROCHE-2661575

PATIENT
  Sex: Female

DRUGS (2)
  1. PULMOZYME [Suspect]
     Active Substance: DORNASE ALFA
     Indication: CYSTIC FIBROSIS
     Dosage: NEBULIZE THE CONTENTS OF 1 VIAL(S) TWICE A DAY?SOLUTION, NON?ORAL
     Route: 055
  2. PULMOZYME [Suspect]
     Active Substance: DORNASE ALFA
     Indication: CYSTIC FIBROSIS LUNG
     Route: 065
     Dates: start: 201509, end: 20200814

REACTIONS (1)
  - Cystic fibrosis [Fatal]
